FAERS Safety Report 7421873-4 (Version None)
Quarter: 2011Q2

REPORT INFORMATION
  Report Type: 
  Country: None (occurrence: None)
  Receive Date: 20110418
  Receipt Date: 20110407
  Transmission Date: 20111010
  Serious: Yes (Hospitalization)
  Sender: FDA-Public Use
  Company Number: US-ASTRAZENECA-2010SE55852

PATIENT
  Age: 33282 Day
  Sex: Female

DRUGS (3)
  1. CRESTOR [Suspect]
     Route: 048
     Dates: end: 20101123
  2. CRESTOR [Suspect]
     Route: 048
     Dates: start: 20101101
  3. STEROIDS [Suspect]
     Route: 065

REACTIONS (7)
  - GLYCOSYLATED HAEMOGLOBIN INCREASED [None]
  - PNEUMONIA [None]
  - BRONCHITIS [None]
  - BLOOD GLUCOSE INCREASED [None]
  - MALAISE [None]
  - URINARY TRACT INFECTION [None]
  - THROMBOSIS [None]
